FAERS Safety Report 18904362 (Version 1)
Quarter: 2021Q1

REPORT INFORMATION
  Report Type: Spontaneous
  Country: US (occurrence: US)
  Receive Date: 20210217
  Receipt Date: 20210217
  Transmission Date: 20210420
  Serious: Yes (Hospitalization)
  Sender: FDA-Public Use
  Company Number: None

PATIENT
  Age: 69 Year
  Sex: Female

DRUGS (1)
  1. BREXUCABTAGENE AUTOLEUCEL. [Suspect]
     Active Substance: BREXUCABTAGENE AUTOLEUCEL
     Indication: MANTLE CELL LYMPHOMA
     Dosage: ?          OTHER FREQUENCY:ONCE;?
     Route: 041
     Dates: start: 20210201, end: 20210201

REACTIONS (5)
  - Cytokine release syndrome [None]
  - Lymphocyte adoptive therapy [None]
  - Blood fibrinogen decreased [None]
  - Neurotoxicity [None]
  - Serum ferritin decreased [None]

NARRATIVE: CASE EVENT DATE: 20210207
